FAERS Safety Report 5457907-6 (Version None)
Quarter: 2007Q3

REPORT INFORMATION
  Report Type: 
  Country: None (occurrence: None)
  Receive Date: 20070918
  Receipt Date: 20070906
  Transmission Date: 20080115
  Serious: Yes (Hospitalization, Other)
  Sender: FDA-Public Use
  Company Number: US-PFIZER INC-2007076502

PATIENT
  Sex: Female

DRUGS (3)
  1. LYRICA [Suspect]
  2. HYDROCHLOROTHIAZIDE [Suspect]
  3. ALL OTHER THERAPEUTIC PRODUCTS [Suspect]

REACTIONS (3)
  - FEELING COLD [None]
  - RENAL DISORDER [None]
  - TREMOR [None]
